FAERS Safety Report 5087796-3 (Version None)
Quarter: 2006Q3

REPORT INFORMATION
  Report Type: 
  Country: None (occurrence: None)
  Receive Date: 20060824
  Receipt Date: 20060817
  Transmission Date: 20061208
  Serious: Yes (Congenital Anomaly)
  Sender: FDA-Public Use
  Company Number: GB-ROCHE-460083

PATIENT
  Age: 35 Year
  Sex: Female

DRUGS (5)
  1. SAQUINAVIR [Suspect]
     Indication: DRUG USE FOR UNKNOWN INDICATION
     Route: 048
     Dates: start: 20060411
  2. ABACAVIR/LAMIVUDINE [Concomitant]
     Dosage: TDD=1/DAY
     Route: 048
     Dates: end: 20051225
  3. NEVIRAPINE [Concomitant]
     Route: 048
     Dates: end: 20051225
  4. LAMIVUDINE + ZIDOVUDINE [Concomitant]
     Dosage: TDD= 2/DAY
     Route: 048
     Dates: start: 20060411
  5. RITONAVIR [Concomitant]
     Route: 048
     Dates: start: 20060411

REACTIONS (2)
  - DRUG EXPOSURE DURING PREGNANCY [None]
  - TRISOMY 21 [None]
